FAERS Safety Report 7463634-6 (Version None)
Quarter: 2011Q2

REPORT INFORMATION
  Report Type: 
  Country: None (occurrence: None)
  Receive Date: 20110428
  Receipt Date: 20110420
  Transmission Date: 20111010
  Serious: Yes (Other)
  Sender: FDA-Public Use
  Company Number: 1000020372

PATIENT
  Age: 75 Year
  Sex: Female

DRUGS (7)
  1. NORVASC [Suspect]
     Indication: HYPERTENSION
     Dosage: ORAL
     Route: 048
     Dates: start: 20100701, end: 20110401
  2. PHOSLO (CALCIUM ACETATE) (CALCIUM ACETATE) [Concomitant]
  3. ATIVAN (LORAZEPAM) (TABLETS) (LORAZEPAM) [Concomitant]
  4. NEURONTIN [Concomitant]
  5. ASPIRIN (ACETYLSALICYLIC ACID) (81 MILLIGRAM, TABLETS) (ACETYLSALICYLI [Concomitant]
  6. BYSTOLIC [Suspect]
     Indication: HYPERTENSION
     Dosage: 5 MG (5 MG, 1 IN 1 D), ORAL 10 MG (10 MG, 1 IN 1 D), ORAL
     Route: 048
     Dates: start: 20080101
  7. LISINOPRIL [Suspect]
     Indication: HYPERTENSION
     Dosage: 20 MG (10 MG, 2 IN 1 D), ORAL
     Route: 048
     Dates: start: 20100101

REACTIONS (3)
  - BLOOD PRESSURE INADEQUATELY CONTROLLED [None]
  - RENAL FAILURE [None]
  - BLOOD PRESSURE INCREASED [None]
